FAERS Safety Report 6735155-7 (Version None)
Quarter: 2010Q2

REPORT INFORMATION
  Report Type: 
  Country: None (occurrence: None)
  Receive Date: 20100519
  Receipt Date: 20100519
  Transmission Date: 20101027
  Serious: Yes (Disabling)
  Sender: FDA-Public Use
  Company Number: None

PATIENT
  Sex: Male
  Weight: 72.5755 kg

DRUGS (1)
  1. ZETIA [Suspect]
     Indication: DRUG INTOLERANCE
     Dosage: 10 MG (1) DAILY  6 YEARS OR LONGER

REACTIONS (1)
  - MYOSITIS [None]
